FAERS Safety Report 16428677 (Version 15)
Quarter: 2020Q2

REPORT INFORMATION
  Report Type: Spontaneous
  Country: US (occurrence: US)
  Receive Date: 20190613
  Receipt Date: 20200602
  Transmission Date: 20200713
  Serious: Yes (Hospitalization)
  Sender: FDA-Public Use
  Company Number: US-ACTELION-A-NJ2019-191575

PATIENT
  Age: 58 Year
  Sex: Female
  Weight: 85.71 kg

DRUGS (10)
  1. VELETRI [Suspect]
     Active Substance: EPOPROSTENOL
     Indication: PULMONARY ARTERIAL HYPERTENSION
     Dosage: 20 NG/KG, PER MIN
     Route: 042
     Dates: start: 20190327
  2. VELETRI [Suspect]
     Active Substance: EPOPROSTENOL
     Dosage: 15.5 NG/KG, PER MIN
     Route: 042
     Dates: start: 20200121
  3. OPSUMIT [Suspect]
     Active Substance: MACITENTAN
     Dosage: 10 MG, QD
     Route: 048
     Dates: start: 20200115
  4. VELETRI [Suspect]
     Active Substance: EPOPROSTENOL
     Dosage: 16.5 NG/KG, PER MIN
     Route: 042
     Dates: start: 20200126
  5. VELETRI [Suspect]
     Active Substance: EPOPROSTENOL
     Dosage: 13 NG/KG, PER MIN
     Route: 042
  6. VELETRI [Suspect]
     Active Substance: EPOPROSTENOL
     Dosage: 17 NG/KG, PER MIN
     Route: 042
     Dates: start: 20200126
  7. VELETRI [Suspect]
     Active Substance: EPOPROSTENOL
     Dosage: 14.5 NG/KG, PER MIN
     Route: 042
     Dates: start: 20190326
  8. OPSUMIT [Suspect]
     Active Substance: MACITENTAN
     Indication: PULMONARY ARTERIAL HYPERTENSION
     Dosage: 10 MG, QD
     Route: 048
  9. VELETRI [Suspect]
     Active Substance: EPOPROSTENOL
     Dosage: 14 NG/KG, PER MIN
     Route: 042
     Dates: start: 20190326
  10. ADEMPAS [Concomitant]
     Active Substance: RIOCIGUAT

REACTIONS (34)
  - Hypotension [Unknown]
  - Dyspnoea [Unknown]
  - Gastrointestinal haemorrhage [Recovered/Resolved]
  - Dyspnoea exertional [Unknown]
  - Feeling abnormal [Unknown]
  - Pallor [Unknown]
  - Fatigue [Unknown]
  - Haemoglobin decreased [Unknown]
  - Gastrooesophageal reflux disease [Unknown]
  - Condition aggravated [Unknown]
  - Pain in jaw [Unknown]
  - Right ventricular failure [Recovered/Resolved]
  - Oxygen saturation decreased [Unknown]
  - Tenderness [Unknown]
  - Hospitalisation [Unknown]
  - Malaise [Unknown]
  - Diarrhoea [Unknown]
  - Treatment noncompliance [Unknown]
  - Nausea [Not Recovered/Not Resolved]
  - Pain [Recovered/Resolved]
  - Transfusion [Recovered/Resolved]
  - Abdominal discomfort [Unknown]
  - Vomiting [Unknown]
  - Anaemia [Unknown]
  - Full blood count decreased [Recovered/Resolved]
  - Somnolence [Unknown]
  - Musculoskeletal chest pain [Not Recovered/Not Resolved]
  - Induration [Unknown]
  - Throat irritation [Unknown]
  - Device breakage [Unknown]
  - Constipation [Unknown]
  - Respiratory failure [Not Recovered/Not Resolved]
  - Headache [Not Recovered/Not Resolved]
  - Catheter management [Recovered/Resolved]

NARRATIVE: CASE EVENT DATE: 20190820
